FAERS Safety Report 22260829 (Version 1)
Quarter: 2023Q2

REPORT INFORMATION
  Report Type: Spontaneous
  Country: PR (occurrence: PR)
  Receive Date: 20230427
  Receipt Date: 20230427
  Transmission Date: 20230722
  Serious: No
  Sender: FDA-Public Use
  Company Number: PR-PFIZER INC-202300167071

PATIENT
  Age: 56 Year
  Sex: Female

DRUGS (1)
  1. XELJANZ [Suspect]
     Active Substance: TOFACITINIB CITRATE
     Dosage: 5 MG PER DAY
     Route: 048
     Dates: start: 20220225

REACTIONS (2)
  - Headache [Recovering/Resolving]
  - Rhinitis allergic [Recovering/Resolving]
